FAERS Safety Report 9052045 (Version 1)
Quarter: 2013Q1

REPORT INFORMATION
  Report Type: Report from Study
  Country: US (occurrence: US)
  Receive Date: 20130207
  Receipt Date: 20130207
  Transmission Date: 20140127
  Serious: Yes (Other)
  Sender: FDA-Public Use
  Company Number: US-JNJFOC-20130115404

PATIENT
  Sex: Female
  Weight: 86.64 kg

DRUGS (10)
  1. REMICADE [Suspect]
     Indication: CROHN^S DISEASE
     Route: 042
  2. REMICADE [Suspect]
     Indication: CROHN^S DISEASE
     Route: 042
     Dates: start: 20130102
  3. COLAZAL [Concomitant]
     Route: 065
  4. ENTOCORT [Concomitant]
     Dosage: WHEN NEEDED
     Route: 065
  5. CORTENEMA [Concomitant]
     Dosage: WHEN NEEDED
     Route: 065
  6. CANASA [Concomitant]
     Dosage: WHEN NEEDED
     Route: 065
  7. FLAGYL [Concomitant]
     Indication: CONDITION AGGRAVATED
     Dosage: WHEN NEEDED FOR FLARE
     Route: 065
  8. UNSPECIFIED BLOOD PRESSURE MEDS [Concomitant]
     Route: 065
  9. LIPITOR [Concomitant]
     Route: 065
  10. MIRALAX [Concomitant]
     Indication: CONSTIPATION
     Dosage: WHEN NEEDED
     Route: 065

REACTIONS (10)
  - Myocardial infarction [Unknown]
  - Cardiac flutter [Unknown]
  - Crohn^s disease [Unknown]
  - Constipation [Unknown]
  - Hypotension [Unknown]
  - Infusion related reaction [Unknown]
  - Fatigue [Unknown]
  - Pruritus [Unknown]
  - Flushing [Unknown]
  - Arthritis [Unknown]
